FAERS Safety Report 21003863 (Version 1)
Quarter: 2022Q2

REPORT INFORMATION
  Report Type: Report from Study
  Country: CN (occurrence: None)
  Receive Date: 20220624
  Receipt Date: 20220624
  Transmission Date: 20220720
  Serious: Yes (Hospitalization)
  Sender: FDA-Public Use
  Company Number: CN-ROCHE-3122346

PATIENT
  Age: 52 Year
  Sex: Male
  Weight: 74 kg

DRUGS (25)
  1. ATEZOLIZUMAB [Suspect]
     Active Substance: ATEZOLIZUMAB
     Indication: Hepatocellular carcinoma
     Dosage: 25/AUG/2021 WAS MOST RECENT DOSE (1200MG) OF ATEZOLIZUMAB PRIOR TO AE
     Route: 041
     Dates: start: 20210527
  2. BEVACIZUMAB [Suspect]
     Active Substance: BEVACIZUMAB
     Indication: Hepatocellular carcinoma
     Dosage: 25/AUG/2021 WAS MOST RECENT DOSE (1050MG) OF BEVACIZUMAB PRIOR TO AE
     Route: 042
     Dates: start: 20210527
  3. ENTECAVIR [Concomitant]
     Active Substance: ENTECAVIR
     Indication: Antiviral treatment
     Dates: start: 20210511
  4. BICYCLOL [Concomitant]
     Active Substance: BICYCLOL
     Dates: start: 20210625
  5. HERBALS\DIAMMONIUM GLYCYRRHIZINATE [Concomitant]
     Active Substance: HERBALS\DIAMMONIUM GLYCYRRHIZINATE
     Dosage: ENTERIC COATED?CAPSULES
     Dates: start: 20210625
  6. EUTHYROX [Concomitant]
     Active Substance: LEVOTHYROXINE SODIUM
     Dates: start: 20210825, end: 20211027
  7. EUTHYROX [Concomitant]
     Active Substance: LEVOTHYROXINE SODIUM
     Dates: start: 20211027
  8. LEVOFLOXACIN MESILATE [Concomitant]
     Indication: Infection prophylaxis
     Dates: start: 20210914, end: 20210924
  9. SODIUM CHLORIDE [Concomitant]
     Active Substance: SODIUM CHLORIDE
     Dates: start: 20210914, end: 20210924
  10. PSEUDOMONAS AERUGINOSA [Concomitant]
     Dates: start: 20210914, end: 20210924
  11. HERBALS\DIAMMONIUM GLYCYRRHIZINATE [Concomitant]
     Active Substance: HERBALS\DIAMMONIUM GLYCYRRHIZINATE
     Dates: start: 20210914, end: 20210924
  12. DEXAMETHASONE SODIUM PHOSPHATE [Concomitant]
     Active Substance: DEXAMETHASONE SODIUM PHOSPHATE
     Route: 042
     Dates: start: 20210916, end: 20210918
  13. ILAPRAZOLE [Concomitant]
     Active Substance: ILAPRAZOLE
     Dosage: ENTERIC-COATED TABLETS
     Dates: start: 20210916, end: 20210924
  14. HYDROTALCITE [Concomitant]
     Active Substance: HYDROTALCITE
     Dosage: CHEWABLE TABLETS
     Dates: start: 20210916, end: 20210918
  15. TORSEMIDE [Concomitant]
     Active Substance: TORSEMIDE
     Dates: start: 20210914, end: 20210914
  16. TORSEMIDE [Concomitant]
     Active Substance: TORSEMIDE
     Dates: start: 20210915, end: 20210915
  17. TORSEMIDE [Concomitant]
     Active Substance: TORSEMIDE
     Dates: start: 20210916, end: 20210916
  18. TORSEMIDE [Concomitant]
     Active Substance: TORSEMIDE
     Dates: start: 20210917, end: 20210917
  19. TORSEMIDE [Concomitant]
     Active Substance: TORSEMIDE
     Dates: start: 20210923, end: 20210924
  20. HEPARIN SODIUM [Concomitant]
     Active Substance: HEPARIN SODIUM
     Indication: Anticoagulant therapy
     Dates: start: 20210914, end: 20210915
  21. HEPARIN SODIUM [Concomitant]
     Active Substance: HEPARIN SODIUM
     Dates: start: 20210916, end: 20210918
  22. HEPARIN SODIUM [Concomitant]
     Active Substance: HEPARIN SODIUM
     Dates: start: 20210919, end: 20210929
  23. LIDOCAINE HYDROCHLORIDE [Concomitant]
     Active Substance: LIDOCAINE HYDROCHLORIDE
     Dates: start: 20210914, end: 20210914
  24. AVATROMBOPAG [Concomitant]
     Active Substance: AVATROMBOPAG
     Dates: start: 20211210
  25. UBENIMEX [Concomitant]
     Active Substance: UBENIMEX
     Dates: start: 20211019, end: 20211027

REACTIONS (1)
  - Ascites [Recovered/Resolved with Sequelae]

NARRATIVE: CASE EVENT DATE: 20210901
